FAERS Safety Report 8208480-0 (Version None)
Quarter: 2012Q1

REPORT INFORMATION
  Report Type: 
  Country: None (occurrence: None)
  Receive Date: 20120314
  Receipt Date: 20120229
  Transmission Date: 20120608
  Serious: Yes (Hospitalization, Other)
  Sender: FDA-Public Use
  Company Number: BG-CELGENEUS-022-21880-12021884

PATIENT
  Sex: Male
  Weight: 81 kg

DRUGS (10)
  1. REVLIMID [Suspect]
     Indication: MULTIPLE MYELOMA
     Dosage: 25 MILLIGRAM
     Route: 048
     Dates: start: 20120102
  2. CHLOPHAZOLIN [Concomitant]
     Dosage: .1 MILLIGRAM
     Route: 048
     Dates: start: 20080101
  3. LISINOPRIL [Concomitant]
     Dosage: 10 MILLIGRAM
     Route: 048
     Dates: start: 20080101
  4. LISINOPRIL [Concomitant]
     Dosage: 30 MILLIGRAM
     Route: 048
     Dates: start: 20120102, end: 20120103
  5. DEXAMETHASONE [Suspect]
     Indication: MULTIPLE MYELOMA
     Dosage: 40
     Route: 065
     Dates: start: 20120102
  6. CIPROFLOXACIN [Concomitant]
     Indication: ANTIBIOTIC PROPHYLAXIS
     Dosage: 500 MILLIGRAM
     Route: 048
     Dates: start: 20120102, end: 20120103
  7. INDAPAMID [Concomitant]
     Dosage: 2.5 MILLIGRAM
     Route: 048
     Dates: start: 20080101
  8. PLENDIL [Concomitant]
     Dosage: 5 MILLIGRAM
     Route: 048
     Dates: start: 20070101
  9. CARFILZOMIB [Suspect]
     Indication: MULTIPLE MYELOMA
     Dosage: 40 MILLIGRAM
     Route: 065
     Dates: start: 20120102, end: 20120102
  10. ADPIRIN [Concomitant]
     Indication: ANTICOAGULANT THERAPY
     Dosage: 100 MILLIGRAM
     Route: 048
     Dates: start: 20120102, end: 20120103

REACTIONS (2)
  - PATHOLOGICAL FRACTURE [None]
  - COLORECTAL CANCER [None]
